FAERS Safety Report 6644050-3 (Version None)
Quarter: 2010Q1

REPORT INFORMATION
  Report Type: 
  Country: None (occurrence: None)
  Receive Date: 20100322
  Receipt Date: 20100308
  Transmission Date: 20100710
  Serious: No
  Sender: FDA-Public Use
  Company Number: US-B.I. PHARMACEUTICALS,INC./RIDGEFIELD-2010-BP-02760BP

PATIENT
  Sex: Male

DRUGS (7)
  1. ZANTAC 150 [Suspect]
     Indication: PROPHYLAXIS
     Dosage: 150 MG
     Route: 048
     Dates: start: 20100201, end: 20100303
  2. PLAVIX [Concomitant]
     Indication: HYPERCHOLESTEROLAEMIA
     Dosage: 75 MG
     Route: 048
  3. LOVAZA [Concomitant]
  4. ATENOLOL [Concomitant]
     Indication: HYPERTENSION
     Dosage: 25 MG
     Route: 048
  5. ZETIA [Concomitant]
     Indication: HYPERCHOLESTEROLAEMIA
     Dosage: 10 MG
     Route: 048
  6. AMIODARONE HCL [Concomitant]
     Dosage: 50 MG
     Route: 048
  7. COZAAR [Concomitant]
     Indication: HYPERTENSION
     Dosage: 50 MG
     Route: 048

REACTIONS (1)
  - DIARRHOEA [None]
